FAERS Safety Report 6107915-7 (Version None)
Quarter: 2009Q1

REPORT INFORMATION
  Report Type: 
  Country: None (occurrence: None)
  Receive Date: 20090309
  Receipt Date: 20090224
  Transmission Date: 20090719
  Serious: Yes (Other)
  Sender: FDA-Public Use
  Company Number: GB-MERCK-0902USA04426

PATIENT
  Age: 65 Year
  Sex: Male
  Weight: 77 kg

DRUGS (6)
  1. PRINIVIL [Suspect]
     Indication: HYPERTENSION
     Route: 048
     Dates: start: 20071017, end: 20090113
  2. ASPIRIN [Suspect]
     Indication: CARDIOVASCULAR EVENT PROPHYLAXIS
     Route: 048
     Dates: start: 20081028
  3. AMLODIPINE [Concomitant]
     Indication: HYPERTENSION
     Route: 048
     Dates: start: 20071220
  4. CITALOPRAM [Concomitant]
     Indication: DEPRESSED MOOD
     Route: 048
     Dates: start: 20090113
  5. UNOPROST (DOXAZOSIN MESYLATE) [Concomitant]
     Indication: HYPERTENSION
     Route: 048
     Dates: start: 20081028
  6. FENOFIBRATE [Concomitant]
     Indication: HYPERLIPIDAEMIA
     Route: 048
     Dates: start: 20081111

REACTIONS (2)
  - GLOMERULAR FILTRATION RATE ABNORMAL [None]
  - TUBULOINTERSTITIAL NEPHRITIS [None]
